FAERS Safety Report 6511352-0 (Version None)
Quarter: 2009Q4

REPORT INFORMATION
  Report Type: 
  Country: None (occurrence: None)
  Receive Date: 20091222
  Receipt Date: 20090303
  Transmission Date: 20100525
  Serious: No
  Sender: FDA-Public Use
  Company Number: US-ASTRAZENECA-2009UW05816

PATIENT
  Age: 83 Year
  Sex: Female
  Weight: 52.2 kg

DRUGS (4)
  1. CRESTOR [Suspect]
     Route: 048
  2. METOPROLOL SUCCINATE [Concomitant]
  3. AVALID [Concomitant]
  4. FELODIPINE [Concomitant]

REACTIONS (2)
  - PAIN IN EXTREMITY [None]
  - URINARY TRACT INFECTION [None]
